FAERS Safety Report 16731908 (Version 1)
Quarter: 2019Q3

REPORT INFORMATION
  Report Type: Spontaneous
  Country: US (occurrence: US)
  Receive Date: 20190822
  Receipt Date: 20190822
  Transmission Date: 20191005
  Serious: No
  Sender: FDA-Public Use
  Company Number: US-RISING PHARMACEUTICALS, INC.-2019RIS00197

PATIENT
  Sex: Female

DRUGS (2)
  1. PROCTOZONE-HC [Suspect]
     Active Substance: HYDROCORTISONE
     Indication: HAEMORRHOIDS
     Dosage: UNK
     Route: 061
  2. HONEST DIAPER RASH [Suspect]
     Active Substance: ZINC OXIDE
     Dosage: UNK
     Route: 061

REACTIONS (3)
  - Diarrhoea [Not Recovered/Not Resolved]
  - Skin irritation [Unknown]
  - Acne [Not Recovered/Not Resolved]

NARRATIVE: CASE EVENT DATE: 2019
